FAERS Safety Report 12351451 (Version 2)
Quarter: 2016Q2

REPORT INFORMATION
  Report Type: Spontaneous
  Country: FR (occurrence: FR)
  Receive Date: 20160510
  Receipt Date: 20160524
  Transmission Date: 20160815
  Serious: Yes (Hospitalization)
  Sender: FDA-Public Use
  Company Number: FR-PFIZER INC-2016243139

PATIENT
  Age: 3 Year
  Sex: Female
  Weight: 12 kg

DRUGS (7)
  1. MYCAMINE [Concomitant]
     Active Substance: MICAFUNGIN SODIUM
     Dosage: 47 MG, DAILY
     Dates: start: 20160327, end: 20160331
  2. BACTRIM [Concomitant]
     Active Substance: SULFAMETHOXAZOLE\TRIMETHOPRIM
     Indication: PNEUMOCYSTIS JIROVECII PNEUMONIA
     Dosage: 360 MG, 3X/DAY
     Dates: start: 20160326
  3. BACTRIM [Concomitant]
     Active Substance: SULFAMETHOXAZOLE\TRIMETHOPRIM
     Dosage: 300 MG, 3X/WEEK
     Dates: start: 20160418
  4. CURACNE [Interacting]
     Active Substance: ISOTRETINOIN
     Indication: NEUROBLASTOMA
     Dosage: UNK
     Route: 048
     Dates: start: 20160319, end: 20160323
  5. TRIFLUCAN [Suspect]
     Active Substance: FLUCONAZOLE
     Indication: ANTIFUNGAL PROPHYLAXIS
     Dosage: 8 ML, 1X/DAY (IN THE MORNING)
     Route: 048
     Dates: start: 20160402, end: 20160419
  6. CURACNE [Interacting]
     Active Substance: ISOTRETINOIN
     Dosage: 40 MG, 2X/DAY
     Route: 048
     Dates: start: 20160404, end: 20160416
  7. NEURONTIN [Concomitant]
     Active Substance: GABAPENTIN
     Indication: NEUROBLASTOMA
     Dosage: 100 MG, 3X/DAY

REACTIONS (5)
  - Hypercalcaemia [Recovered/Resolved]
  - Renal impairment [Recovered/Resolved]
  - Pain in extremity [Recovered/Resolved]
  - Drug interaction [Recovered/Resolved]
  - Dry skin [Recovered/Resolved]

NARRATIVE: CASE EVENT DATE: 20160415
